FAERS Safety Report 19644663 (Version 1)
Quarter: 2021Q3

REPORT INFORMATION
  Report Type: Spontaneous
  Country: US (occurrence: US)
  Receive Date: 20210802
  Receipt Date: 20210802
  Transmission Date: 20211014
  Serious: No
  Sender: FDA-Public Use
  Company Number: US-009507513-2107USA002599

PATIENT
  Sex: Male

DRUGS (3)
  1. VERQUVO [Suspect]
     Active Substance: VERICIGUAT
     Indication: CARDIAC FAILURE
     Dosage: 2.5 MILLIGRAM
     Route: 048
  2. VERQUVO [Suspect]
     Active Substance: VERICIGUAT
     Dosage: 10 MG, ONCE A DAY (QD)
     Route: 048
  3. VERQUVO [Suspect]
     Active Substance: VERICIGUAT
     Dosage: 5 MILLIGRAM
     Route: 048

REACTIONS (2)
  - Blood pressure decreased [Unknown]
  - Malaise [Unknown]
